FAERS Safety Report 9147725 (Version 2)
Quarter: 2013Q4

REPORT INFORMATION
  Report Type: Spontaneous
  Country: US (occurrence: US)
  Receive Date: 20130307
  Receipt Date: 20131218
  Transmission Date: 20140711
  Serious: No
  Sender: FDA-Public Use
  Company Number: US-ASTRAZENECA-2013SE10764

PATIENT
  Age: 63 Year
  Sex: Female
  Weight: 61.7 kg

DRUGS (2)
  1. ARIMIDEX [Suspect]
     Indication: BREAST CANCER FEMALE
     Route: 048
     Dates: start: 200503
  2. VENTOLIN [Concomitant]
     Indication: ASTHMA

REACTIONS (7)
  - Iron deficiency [Unknown]
  - Serum ferritin decreased [Unknown]
  - Transferrin saturation decreased [Unknown]
  - Weight increased [Unknown]
  - Adverse event [Unknown]
  - Blood cholesterol increased [Unknown]
  - Bone density decreased [Unknown]
